FAERS Safety Report 6249694-9 (Version None)
Quarter: 2009Q2

REPORT INFORMATION
  Report Type: 
  Country: None (occurrence: None)
  Receive Date: 20090624
  Receipt Date: 20090608
  Transmission Date: 20091009
  Serious: Yes (Life-Threatening)
  Sender: FDA-Public Use
  Company Number: DSA_33878_2009

PATIENT
  Sex: Female

DRUGS (9)
  1. HERBESSER R         (HERBESSER R - DILTIAZEM HYDROCHLORIDE SLOW RELEAS [Suspect]
     Indication: MYOCARDIAL ISCHAEMIA
     Dosage: (100 MG QD ORAL)
     Route: 048
     Dates: start: 20090517, end: 20090602
  2. FRANDOL [Concomitant]
  3. LASIX [Concomitant]
  4. SIGMART [Concomitant]
  5. ASPIRIN [Concomitant]
  6. PARIET [Concomitant]
  7. ALOSENN /00476901/ [Concomitant]
  8. ZOLPIDEM TARTRATE [Concomitant]
  9. MAGNESIUM OXIDE [Concomitant]

REACTIONS (3)
  - ATRIOVENTRICULAR BLOCK COMPLETE [None]
  - BRADYARRHYTHMIA [None]
  - CHEST DISCOMFORT [None]
